FAERS Safety Report 23144332 (Version 3)
Quarter: 2024Q3

REPORT INFORMATION
  Report Type: Spontaneous
  Country: US (occurrence: US)
  Receive Date: 20231103
  Receipt Date: 20240701
  Transmission Date: 20241016
  Serious: No
  Sender: UCB
  Company Number: US-UCBSA-2023051648

PATIENT
  Age: 24 Year
  Sex: Female

DRUGS (1)
  1. NAYZILAM [Suspect]
     Active Substance: MIDAZOLAM
     Indication: Epilepsy
     Dosage: 1 NASAL SPRAY/ 5MG/0.1ML 2NSP

REACTIONS (2)
  - Device issue [Unknown]
  - Product dose omission issue [Unknown]

NARRATIVE: CASE EVENT DATE: 20231025
